FAERS Safety Report 23654716 (Version 1)
Quarter: 2024Q1

REPORT INFORMATION
  Report Type: Report from Study
  Country: DE (occurrence: DE)
  Receive Date: 20240320
  Receipt Date: 20240320
  Transmission Date: 20240410
  Serious: Yes (Other)
  Sender: FDA-Public Use
  Company Number: DE-002147023-NVSC2023DE186929

PATIENT
  Sex: Female

DRUGS (18)
  1. BEOVU [Suspect]
     Active Substance: BROLUCIZUMAB-DBLL
     Indication: Neovascular age-related macular degeneration
     Dosage: 0.05 ML, ONCE/SINGLE (= 6 MG BROLUCIZUMAB), (PRE-FILLED SYRINGE 120 MG/ ML) (LEFT EYE)
     Route: 031
     Dates: start: 20220202, end: 20220202
  2. BEOVU [Suspect]
     Active Substance: BROLUCIZUMAB-DBLL
     Dosage: 0.05 ML, ONCE/SINGLE (= 6 MG BROLUCIZUMAB), (PRE-FILLED SYRINGE 120 MG/ ML) (LEFT EYE)
     Route: 031
     Dates: start: 20220302, end: 20220302
  3. BEOVU [Suspect]
     Active Substance: BROLUCIZUMAB-DBLL
     Dosage: 0.05 ML, ONCE/SINGLE (= 6 MG BROLUCIZUMAB), (PRE-FILLED SYRINGE 120 MG/ ML) (LEFT EYE)
     Route: 031
     Dates: start: 20220330, end: 20220330
  4. BEOVU [Suspect]
     Active Substance: BROLUCIZUMAB-DBLL
     Dosage: 0.05 ML, ONCE/SINGLE (= 6 MG BROLUCIZUMAB), (PRE-FILLED SYRINGE 120 MG/ ML) (LEFT EYE)
     Route: 031
     Dates: start: 20220524, end: 20220524
  5. BEOVU [Suspect]
     Active Substance: BROLUCIZUMAB-DBLL
     Dosage: 0.05 ML, ONCE/SINGLE (= 6 MG BROLUCIZUMAB), (PRE-FILLED SYRINGE 120 MG/ ML) (LEFT EYE)
     Route: 031
     Dates: start: 20220720, end: 20220720
  6. BEOVU [Suspect]
     Active Substance: BROLUCIZUMAB-DBLL
     Dosage: 0.05 ML, ONCE/SINGLE (= 6 MG BROLUCIZUMAB), (PRE-FILLED SYRINGE 120 MG/ ML) (LEFT EYE)
     Route: 031
     Dates: start: 20220914, end: 20220914
  7. BEOVU [Suspect]
     Active Substance: BROLUCIZUMAB-DBLL
     Dosage: 0.05 ML, ONCE/SINGLE (= 6 MG BROLUCIZUMAB), (PRE-FILLED SYRINGE 120 MG/ ML) (LEFT EYE)
     Route: 031
     Dates: start: 20221123, end: 20221123
  8. BEOVU [Suspect]
     Active Substance: BROLUCIZUMAB-DBLL
     Dosage: 0.05 ML, ONCE/SINGLE (= 6 MG BROLUCIZUMAB), (PRE-FILLED SYRINGE 120 MG/ ML) (LEFT EYE)
     Route: 031
     Dates: start: 20230201, end: 20230201
  9. BEOVU [Suspect]
     Active Substance: BROLUCIZUMAB-DBLL
     Dosage: 0.05 ML, ONCE/SINGLE (= 6 MG BROLUCIZUMAB), (PRE-FILLED SYRINGE 120 MG/ ML) (LEFT EYE)
     Route: 031
     Dates: start: 20230208, end: 20230208
  10. BEOVU [Suspect]
     Active Substance: BROLUCIZUMAB-DBLL
     Dosage: 0.05 ML, ONCE/SINGLE (= 6 MG BROLUCIZUMAB), (PRE-FILLED SYRINGE 120 MG/ ML) (LEFT EYE)
     Route: 031
     Dates: start: 20230329, end: 20230329
  11. BEOVU [Suspect]
     Active Substance: BROLUCIZUMAB-DBLL
     Dosage: 0.05 ML, ONCE/SINGLE (= 6 MG BROLUCIZUMAB), (PRE-FILLED SYRINGE 120 MG/ ML) (LEFT EYE)
     Route: 031
     Dates: start: 20230405, end: 20230405
  12. BEOVU [Suspect]
     Active Substance: BROLUCIZUMAB-DBLL
     Dosage: 0.05 ML, ONCE/SINGLE (= 6 MG BROLUCIZUMAB), (PRE-FILLED SYRINGE 120 MG/ ML) (LEFT EYE)
     Route: 031
     Dates: start: 20230531, end: 20230531
  13. BEOVU [Suspect]
     Active Substance: BROLUCIZUMAB-DBLL
     Dosage: 0.05 ML, ONCE/SINGLE (= 6 MG BROLUCIZUMAB), (PRE-FILLED SYRINGE 120 MG/ ML) (LEFT EYE)
     Route: 031
     Dates: start: 20230607, end: 20230607
  14. BEOVU [Suspect]
     Active Substance: BROLUCIZUMAB-DBLL
     Dosage: 0.05 ML, ONCE/SINGLE (= 6 MG BROLUCIZUMAB), (PRE-FILLED SYRINGE 120 MG/ ML) (LEFT EYE)
     Route: 031
     Dates: start: 20230802, end: 20230802
  15. BEOVU [Suspect]
     Active Substance: BROLUCIZUMAB-DBLL
     Dosage: 0.05 ML, ONCE/SINGLE (= 6 MG BROLUCIZUMAB), (PRE-FILLED SYRINGE 120 MG/ ML) (LEFT EYE)
     Route: 031
     Dates: start: 20230809, end: 20230809
  16. BEOVU [Suspect]
     Active Substance: BROLUCIZUMAB-DBLL
     Dosage: 0.05 ML, ONCE/SINGLE (= 6 MG BROLUCIZUMAB), (PRE-FILLED SYRINGE 120 MG/ ML) (LEFT EYE)
     Route: 031
     Dates: start: 20230927, end: 20230927
  17. BEOVU [Suspect]
     Active Substance: BROLUCIZUMAB-DBLL
     Dosage: 0.05 ML, ONCE/SINGLE (= 6 MG BROLUCIZUMAB), (PRE-FILLED SYRINGE 120 MG/ ML) (LEFT EYE)
     Route: 031
     Dates: start: 20231122, end: 20231122
  18. BEOVU [Suspect]
     Active Substance: BROLUCIZUMAB-DBLL
     Dosage: 0.05 ML, ONCE/SINGLE (= 6 MG BROLUCIZUMAB), (PRE-FILLED SYRINGE 120 MG/ ML) (LEFT EYE)
     Route: 031
     Dates: start: 20240117, end: 20240117

REACTIONS (1)
  - Keratitis [Recovered/Resolved]

NARRATIVE: CASE EVENT DATE: 20230712
